FAERS Safety Report 10420713 (Version 1)
Quarter: 2014Q1

REPORT INFORMATION
  Report Type: Spontaneous
  Country: US (occurrence: None)
  Receive Date: 20130916
  Receipt Date: 20130916
  Transmission Date: 20141002
  Serious: Yes (Other)
  Sender: FDA-Public Use
  Company Number: JPI-P-025113

PATIENT
  Age: 29 Year
  Sex: Female
  Weight: 54.43 kg

DRUGS (7)
  1. XYREM (500 MILLIGRAM/MILLILITERS, SOLUTION) (SODIUM OXYBATE) [Suspect]
     Indication: NARCOLEPSY
     Route: 048
     Dates: start: 20110721
  2. XYREM (500 MILLIGRAM/MILLILITERS, SOLUTION) (SODIUM OXYBATE) [Suspect]
     Indication: SOMNOLENCE
     Route: 048
     Dates: start: 20110721
  3. ALCOHOL [Suspect]
     Indication: ALCOHOL USE
  4. AMPHETAMINE, DEXTROAMPHETAMINE MIXED SALTS [Concomitant]
  5. LAMOTRIGINE [Concomitant]
  6. FLUOXETINE HYDROCHLORIDE [Concomitant]
  7. CLONAZEPAM [Concomitant]

REACTIONS (5)
  - Back injury [None]
  - Fall [None]
  - Intervertebral disc protrusion [None]
  - Intervertebral disc degeneration [None]
  - Back pain [None]
